FAERS Safety Report 5272327-5 (Version None)
Quarter: 2007Q1

REPORT INFORMATION
  Report Type: 
  Country: None (occurrence: None)
  Receive Date: 20061214
  Receipt Date: 20060612
  Transmission Date: 20070707
  Serious: Yes (Hospitalization)
  Sender: FDA-Public Use
  Company Number: 2006075433

PATIENT
  Age: 45 Year
  Sex: Male
  Weight: 106.5953 kg

DRUGS (2)
  1. BEXTRA [Suspect]
     Indication: ARTHRALGIA
     Dosage: (20 MG, AS NECESSARY)
     Dates: start: 20020228
  2. BEXTRA [Suspect]
     Indication: BACK PAIN
     Dosage: (20 MG, AS NECESSARY)
     Dates: start: 20020228

REACTIONS (2)
  - ANXIETY [None]
  - MYOCARDIAL INFARCTION [None]
